FAERS Safety Report 9352222 (Version 2)
Quarter: 2013Q3

REPORT INFORMATION
  Report Type: Report from Study
  Country: US (occurrence: US)
  Receive Date: 20130617
  Receipt Date: 20130702
  Transmission Date: 20140515
  Serious: Yes (Hospitalization)
  Sender: FDA-Public Use
  Company Number: US-CELGENEUS-163-C5013-13061386

PATIENT
  Age: 77 Year
  Sex: Female
  Weight: 63.5 kg

DRUGS (18)
  1. CC-5013 [Suspect]
     Indication: ACUTE MYELOID LEUKAEMIA
     Dosage: 50 MILLIGRAM
     Route: 048
     Dates: start: 20130313, end: 20130515
  2. AZACITIDINE INJECTABLE [Suspect]
     Indication: ACUTE MYELOID LEUKAEMIA
     Dosage: 75 MILLIGRAM/SQ. METER
     Route: 058
     Dates: start: 20130306, end: 20130312
  3. AZACITIDINE INJECTABLE [Suspect]
     Dosage: 75 MILLIGRAM/SQ. METER
     Route: 058
     Dates: start: 20130529, end: 20130604
  4. DEXAMETHASONE [Concomitant]
     Indication: ENCEPHALOPATHY
     Route: 041
     Dates: start: 20130605, end: 20130605
  5. KEPPRA [Concomitant]
     Indication: PROPHYLAXIS
     Route: 048
     Dates: start: 20130604, end: 20130605
  6. NORMAL SALINE [Concomitant]
     Indication: PRODUCT USED FOR UNKNOWN INDICATION
     Route: 041
     Dates: start: 20130418
  7. NORMAL SALINE [Concomitant]
     Indication: DEHYDRATION
     Route: 041
     Dates: start: 20130604
  8. HEPARIN [Concomitant]
     Indication: PRODUCT USED FOR UNKNOWN INDICATION
     Dosage: 30 UNITS
     Route: 041
     Dates: start: 20130418
  9. HYDRALAZINE [Concomitant]
     Indication: HYPERTENSION
     Route: 041
     Dates: start: 20130606, end: 20130607
  10. MORPHINE SULFATE [Concomitant]
     Indication: PAIN
     Dosage: 2-4 MG
     Route: 048
     Dates: start: 20130603, end: 20130603
  11. MORPHINE SULFATE [Concomitant]
     Dosage: 2.5-10 MG
     Route: 048
     Dates: start: 20130606, end: 20130608
  12. MORPHINE SULFATE [Concomitant]
     Dosage: 5-10 MG
     Route: 041
     Dates: start: 20130608, end: 20130608
  13. LORAZEPAM [Concomitant]
     Indication: CONVULSION
     Dosage: 1-2 MG
     Route: 048
     Dates: start: 20130607, end: 20130608
  14. LORAZEPAM [Concomitant]
     Indication: ANXIETY
     Dosage: 1-2 MG
     Route: 041
     Dates: start: 20130608, end: 20130608
  15. SCOPOLAMINE [Concomitant]
     Indication: PRODUCT USED FOR UNKNOWN INDICATION
     Route: 065
     Dates: start: 20130603, end: 20130603
  16. THIAMINE [Concomitant]
     Indication: SUPPLEMENTATION THERAPY
     Dosage: 100 MILLIGRAM
     Route: 041
     Dates: start: 20130605, end: 20130607
  17. POTASSIUM CHLORIDE [Concomitant]
     Indication: SUPPLEMENTATION THERAPY
     Route: 041
     Dates: start: 20130605, end: 20130605
  18. LACOSAMIDE [Concomitant]
     Indication: PRODUCT USED FOR UNKNOWN INDICATION
     Route: 041
     Dates: start: 20130605, end: 20130607

REACTIONS (1)
  - Metastases to central nervous system [Not Recovered/Not Resolved]
